FAERS Safety Report 12635072 (Version 2)
Quarter: 2016Q4

REPORT INFORMATION
  Report Type: Report from Study
  Country: BR (occurrence: BR)
  Receive Date: 20160809
  Receipt Date: 20161102
  Transmission Date: 20170207
  Serious: Yes (Other)
  Sender: FDA-Public Use
  Company Number: BR-JNJFOC-20160621422

PATIENT
  Age: 64 Year
  Sex: Female
  Weight: 57 kg

DRUGS (6)
  1. METHOTREXATE. [Concomitant]
     Active Substance: METHOTREXATE
     Route: 065
  2. ATENOL [Concomitant]
     Active Substance: ATENOLOL
     Route: 065
  3. ARTRODAR [Concomitant]
     Active Substance: DIACEREIN
     Route: 065
  4. SIMPONI [Suspect]
     Active Substance: GOLIMUMAB
     Indication: RHEUMATOID ARTHRITIS
     Route: 058
     Dates: start: 20160528
  5. DEFLANIL [Concomitant]
     Route: 065
  6. BENICAR HCT [Concomitant]
     Active Substance: HYDROCHLOROTHIAZIDE\OLMESARTAN MEDOXOMIL
     Route: 065

REACTIONS (7)
  - Bone disorder [Recovered/Resolved]
  - Bone swelling [Recovered/Resolved]
  - Fracture [Unknown]
  - Haemorrhage [Unknown]
  - Inflammation [Recovering/Resolving]
  - Ear infection [Unknown]
  - Nasopharyngitis [Unknown]

NARRATIVE: CASE EVENT DATE: 201606
